APPROVED DRUG PRODUCT: CARDAMYST
Active Ingredient: ETRIPAMIL
Strength: 70MG
Dosage Form/Route: SPRAY;NASAL
Application: N218571 | Product #001
Applicant: MILESTONE PHARMACEUTICALS USA INC
Approved: Dec 12, 2025 | RLD: Yes | RS: Yes | Type: RX

PATENTS:
Patent 12257224 | Expires: Jul 15, 2042
Patent 10117848 | Expires: Apr 13, 2036
Patent 10010522 | Expires: Jun 19, 2028
Patent 9463179 | Expires: Jun 19, 2028
Patent 10010523 | Expires: Jun 19, 2028
Patent 9227918 | Expires: Jun 19, 2028

EXCLUSIVITY:
Code: NCE | Date: Dec 12, 2030